FAERS Safety Report 25600960 (Version 2)
Quarter: 2025Q4

REPORT INFORMATION
  Report Type: Spontaneous
  Country: US (occurrence: US)
  Receive Date: 20250724
  Receipt Date: 20251008
  Transmission Date: 20260118
  Serious: No
  Sender: BRISTOL-MYERS SQUIBB COMPANY
  Company Number: US-BRISTOL-MYERS SQUIBB COMPANY-2025-103230

PATIENT
  Age: 87 Year

DRUGS (2)
  1. REVLIMID [Suspect]
     Active Substance: LENALIDOMIDE
     Indication: Diffuse large B-cell lymphoma
  2. REVLIMID [Suspect]
     Active Substance: LENALIDOMIDE

REACTIONS (7)
  - Diarrhoea [Unknown]
  - Dizziness postural [Unknown]
  - Decreased appetite [Unknown]
  - Headache [Unknown]
  - Hypotension [Unknown]
  - Off label use [Unknown]
  - Fungal infection [Unknown]
